FAERS Safety Report 12256888 (Version 1)
Quarter: 2016Q2

REPORT INFORMATION
  Report Type: Spontaneous
  Country: US (occurrence: US)
  Receive Date: 20160412
  Receipt Date: 20160412
  Transmission Date: 20160815
  Serious: Yes (Other)
  Sender: FDA-Public Use
  Company Number: US-GLAXOSMITHKLINE-US2016GSK048929

PATIENT
  Age: 25 Year
  Sex: Female

DRUGS (4)
  1. ARTIFICIAL TEARS [Concomitant]
     Active Substance: GLYCERIN\HYPROMELLOSES\POLYETHYLENE GLYCOL 400
     Indication: OPHTHALMIC HERPES SIMPLEX
     Dosage: UNK, PRN
  2. ALBUTEROL. [Concomitant]
     Active Substance: ALBUTEROL
     Indication: PRODUCT USED FOR UNKNOWN INDICATION
     Dosage: UNK, PRN
     Route: 055
  3. ACYCLOVIR. [Suspect]
     Active Substance: ACYCLOVIR
     Indication: OPHTHALMIC HERPES SIMPLEX
     Dosage: 400 MG,5 IN 1 D
  4. BACITRACIN. [Concomitant]
     Active Substance: BACITRACIN
     Indication: OPHTHALMIC HERPES SIMPLEX

REACTIONS (1)
  - Ophthalmic herpes simplex [Recovered/Resolved]
